FAERS Safety Report 16695065 (Version 2)
Quarter: 2019Q3

REPORT INFORMATION
  Report Type: Report from Study
  Country: None (occurrence: AR)
  Receive Date: 20190812
  Receipt Date: 20190907
  Transmission Date: 20191004
  Serious: Yes (Life-Threatening, Hospitalization, Other)
  Sender: FDA-Public Use
  Company Number: AR-ABBVIE-19K-007-2886550-00

PATIENT
  Sex: Female

DRUGS (1)
  1. HUMIRA [Suspect]
     Active Substance: ADALIMUMAB
     Indication: RHEUMATOID ARTHRITIS
     Route: 058
     Dates: start: 20181128

REACTIONS (3)
  - Chronic obstructive pulmonary disease [Unknown]
  - Respiratory tract infection bacterial [Unknown]
  - Immunodeficiency [Unknown]
